FAERS Safety Report 8169795-8 (Version None)
Quarter: 2012Q1

REPORT INFORMATION
  Report Type: 
  Country: None (occurrence: None)
  Receive Date: 20120228
  Receipt Date: 20120216
  Transmission Date: 20120608
  Serious: Yes (Other)
  Sender: FDA-Public Use
  Company Number: US-BRISTOL-MYERS SQUIBB COMPANY-16402414

PATIENT
  Sex: Male

DRUGS (1)
  1. COUMADIN [Suspect]
     Dosage: ALSO TAKEN 5 MG

REACTIONS (3)
  - NERVOUS SYSTEM DISORDER [None]
  - INTERNATIONAL NORMALISED RATIO DECREASED [None]
  - TRANSIENT ISCHAEMIC ATTACK [None]
